FAERS Safety Report 5393965-5 (Version None)
Quarter: 2007Q3

REPORT INFORMATION
  Report Type: 
  Country: None (occurrence: None)
  Receive Date: 20070723
  Receipt Date: 20061205
  Transmission Date: 20080115
  Serious: No
  Sender: FDA-Public Use
  Company Number: A0630403A

PATIENT
  Age: 44 Year
  Sex: Female

DRUGS (2)
  1. AVANDIA [Suspect]
     Dosage: 2MG PER DAY
     Route: 048
     Dates: start: 20060901
  2. HYDROCHLOROTHIAZIDE [Concomitant]

REACTIONS (3)
  - ARTHRALGIA [None]
  - OEDEMA PERIPHERAL [None]
  - PARAESTHESIA [None]
